FAERS Safety Report 6269935-1 (Version None)
Quarter: 2009Q3

REPORT INFORMATION
  Report Type: 
  Country: None (occurrence: None)
  Receive Date: 20090716
  Receipt Date: 20090406
  Transmission Date: 20100115
  Serious: Yes (Other)
  Sender: FDA-Public Use
  Company Number: US-BAYER-200919657NA

PATIENT
  Age: 54 Year
  Sex: Male

DRUGS (6)
  1. MAGNEVIST [Suspect]
     Indication: NUCLEAR MAGNETIC RESONANCE IMAGING BRAIN
     Dates: start: 20060712, end: 20060712
  2. MAGNEVIST [Suspect]
     Dosage: TOTAL DAILY DOSE: 22 ML
     Dates: start: 20070108, end: 20070108
  3. GADOLINIUM [Suspect]
     Indication: NUCLEAR MAGNETIC RESONANCE IMAGING BRAIN
     Dosage: TOTAL DAILY DOSE: 20 ML
     Route: 042
     Dates: start: 20050329, end: 20050329
  4. GADOLINIUM [Suspect]
     Dates: start: 20070712, end: 20070712
  5. PERCOCET [Concomitant]
     Indication: PAIN
     Route: 048
  6. ASPIRIN [Concomitant]
     Dosage: TOTAL DAILY DOSE: 81 MG
     Route: 048

REACTIONS (11)
  - ABASIA [None]
  - ARTERIOSCLEROSIS [None]
  - JOINT RANGE OF MOTION DECREASED [None]
  - NEPHROGENIC SYSTEMIC FIBROSIS [None]
  - POOR QUALITY SLEEP [None]
  - PRURITUS [None]
  - SKIN CHAPPED [None]
  - SKIN EXFOLIATION [None]
  - SKIN INDURATION [None]
  - SKIN SWELLING [None]
  - SKIN TIGHTNESS [None]
